FAERS Safety Report 8903307 (Version 1)
Quarter: 2012Q4

REPORT INFORMATION
  Report Type: 
  Country: US (occurrence: US)
  Receive Date: 20121113
  Receipt Date: 20121113
  Transmission Date: 20130627
  Serious: No
  Sender: FDA-Public Use
  Company Number: US-009507513-1211USA002119

PATIENT
  Sex: Female

DRUGS (11)
  1. VICTRELIS [Suspect]
     Dosage: 800 mg, tid
     Route: 048
  2. RIBAVIRIN [Suspect]
  3. PEGASYS [Suspect]
     Dosage: 180MCG/0.5ML PFS
  4. ZOLOFT [Concomitant]
  5. LOSARTAN POTASSIUM (+) HYDROCHLOROTHIAZIDE [Concomitant]
     Dosage: 50-12.5
  6. PRILOSEC [Concomitant]
  7. ALEVE [Concomitant]
  8. BENADRYL [Concomitant]
  9. NEUPOGEN [Concomitant]
  10. ONDANSETRON [Concomitant]
  11. FERREX [Concomitant]

REACTIONS (5)
  - White blood cell count decreased [Unknown]
  - Platelet count decreased [Unknown]
  - Haemoglobin decreased [Unknown]
  - Nausea [Unknown]
  - Fatigue [Unknown]
